FAERS Safety Report 22342414 (Version 1)
Quarter: 2023Q2

REPORT INFORMATION
  Report Type: Other
  Country: US (occurrence: US)
  Receive Date: 20230519
  Receipt Date: 20230519
  Transmission Date: 20230722
  Serious: Yes (Hospitalization, Other)
  Sender: FDA-Public Use
  Company Number: US-Bion-011593

PATIENT
  Age: 48 Year
  Sex: Male

DRUGS (1)
  1. IBUPROFEN [Suspect]
     Active Substance: IBUPROFEN
     Indication: Back pain
     Dosage: 10-12 TABLETS
     Route: 048

REACTIONS (4)
  - Hypokalaemia [Recovered/Resolved]
  - Drug abuse [Unknown]
  - Overdose [Unknown]
  - Metabolic acidosis [Recovered/Resolved]
